FAERS Safety Report 7603664-4 (Version None)
Quarter: 2011Q3

REPORT INFORMATION
  Report Type: 
  Country: None (occurrence: None)
  Receive Date: 20110712
  Receipt Date: 20110706
  Transmission Date: 20111222
  Serious: No
  Sender: FDA-Public Use
  Company Number: US-PFIZER INC-2011154175

PATIENT
  Sex: Female

DRUGS (2)
  1. PROGESTERONE [Concomitant]
     Indication: MENSTRUATION IRREGULAR
     Dosage: UNK
  2. CHANTIX [Suspect]
     Indication: SMOKING CESSATION THERAPY
     Dosage: 0.5 MG, DAILY
     Route: 048
     Dates: start: 20110627

REACTIONS (1)
  - ABDOMINAL PAIN [None]
